FAERS Safety Report 6261461-9 (Version None)
Quarter: 2009Q3

REPORT INFORMATION
  Report Type: 
  Country: None (occurrence: None)
  Receive Date: 20090707
  Receipt Date: 20090707
  Transmission Date: 20100115
  Serious: Yes (Other)
  Sender: FDA-Public Use
  Company Number: None

PATIENT
  Age: 56 Year
  Sex: Female
  Weight: 90.7194 kg

DRUGS (2)
  1. CHANTIX [Suspect]
     Indication: NICOTINE DEPENDENCE
     Dosage: 2 X DAY
     Dates: start: 20090423, end: 20090606
  2. CHANTIX [Suspect]
     Indication: NICOTINE DEPENDENCE
     Dosage: 2 X DAY
     Dates: start: 20090606, end: 20090606

REACTIONS (6)
  - ANHEDONIA [None]
  - CRYING [None]
  - DEPRESSION [None]
  - ERYTHEMA [None]
  - JOINT SWELLING [None]
  - OEDEMA PERIPHERAL [None]
